FAERS Safety Report 6057827-2 (Version None)
Quarter: 2009Q1

REPORT INFORMATION
  Report Type: 
  Country: None (occurrence: None)
  Receive Date: 20090129
  Receipt Date: 20090121
  Transmission Date: 20090719
  Serious: Yes (Other)
  Sender: FDA-Public Use
  Company Number: FR-WYE-G02977509

PATIENT
  Sex: Female

DRUGS (2)
  1. RAPAMUNE [Suspect]
     Indication: LYMPHANGIOLEIOMYOMATOSIS
     Route: 048
     Dates: start: 20081125, end: 20081129
  2. RAPAMUNE [Suspect]
     Route: 048
     Dates: start: 20081130

REACTIONS (3)
  - ANAL ULCER [None]
  - APHTHOUS STOMATITIS [None]
  - URTICARIA [None]
